FAERS Safety Report 5366958-1 (Version None)
Quarter: 2007Q2

REPORT INFORMATION
  Report Type: 
  Country: None (occurrence: None)
  Receive Date: 20070622
  Receipt Date: 20070611
  Transmission Date: 20071010
  Serious: Yes (Hospitalization)
  Sender: FDA-Public Use
  Company Number: HQWYE404929MAY07

PATIENT
  Sex: Female
  Weight: 30 kg

DRUGS (6)
  1. RHEUMATREX [Suspect]
     Indication: RHEUMATOID ARTHRITIS
     Route: 048
     Dates: start: 20050424, end: 20060815
  2. HOCHUUEKKITOU [Suspect]
     Indication: RHEUMATOID ARTHRITIS
     Route: 048
     Dates: start: 20060529, end: 20060815
  3. HYPEN [Suspect]
     Indication: RHEUMATOID ARTHRITIS
     Route: 048
     Dates: start: 20050824, end: 20060815
  4. GASTER [Suspect]
     Indication: PROPHYLAXIS
     Route: 048
     Dates: start: 20050824, end: 20060815
  5. REMICADE [Suspect]
     Indication: RHEUMATOID ARTHRITIS
     Route: 042
     Dates: start: 20050824, end: 20060706
  6. FOLIAMIN [Concomitant]
     Indication: PROPHYLAXIS
     Route: 048
     Dates: start: 20050824, end: 20060815

REACTIONS (1)
  - INTERSTITIAL LUNG DISEASE [None]
